FAERS Safety Report 24993708 (Version 4)
Quarter: 2025Q2

REPORT INFORMATION
  Report Type: Spontaneous
  Country: AU (occurrence: AU)
  Receive Date: 20250221
  Receipt Date: 20250403
  Transmission Date: 20250716
  Serious: Yes (Other)
  Sender: UCB
  Company Number: AU-UCBSA-2025009412

PATIENT
  Sex: Female

DRUGS (1)
  1. NEUPRO [Suspect]
     Active Substance: ROTIGOTINE
     Indication: Parkinson^s disease
     Dosage: 6 MILLIGRAM, ONCE DAILY (QD)
     Route: 062
     Dates: start: 202302

REACTIONS (3)
  - Parkinson^s disease [Unknown]
  - Product adhesion issue [Unknown]
  - Product ineffective [Unknown]
